FAERS Safety Report 15434692 (Version 1)
Quarter: 2018Q3

REPORT INFORMATION
  Report Type: Spontaneous
  Country: US (occurrence: US)
  Receive Date: 20180921
  Receipt Date: 20180921
  Transmission Date: 20181010
  Serious: No
  Sender: FDA-Public Use
  Company Number: None

PATIENT
  Age: 63 Year
  Sex: Male
  Weight: 97.07 kg

DRUGS (1)
  1. MAVYRET [Suspect]
     Active Substance: GLECAPREVIR\PIBRENTASVIR
     Indication: CHRONIC HEPATITIS C
     Dosage: TAKE 3 TABLETS BY MOUTH DAILY WITH FOOD AS DIRECTED
     Route: 048
     Dates: start: 201808

REACTIONS (4)
  - Gastric dilatation [None]
  - Skin discolouration [None]
  - Constipation [None]
  - Abdominal pain upper [None]
